FAERS Safety Report 9396145 (Version 2)
Quarter: 2013Q3

REPORT INFORMATION
  Report Type: Spontaneous
  Country: GB (occurrence: None)
  Receive Date: 20130708
  Receipt Date: 20130709
  Transmission Date: 20140515
  Serious: Yes (Other)
  Sender: FDA-Public Use
  Company Number: AUR-APL-2013-05566

PATIENT
  Age: 17 Year
  Sex: Female

DRUGS (2)
  1. LEVETIRACETAM [Suspect]
     Indication: PRODUCT USED FOR UNKNOWN INDICATION
     Dosage: 1500 MG (750 MG, 2 IN 1 D), UNKNOWN
  2. TOPIRAMATE (TOPIRAMATE) [Concomitant]

REACTIONS (8)
  - Aphasia [None]
  - Cognitive disorder [None]
  - Fear [None]
  - Decreased appetite [None]
  - Grand mal convulsion [None]
  - Speech disorder [None]
  - Weight decreased [None]
  - Rash [None]
